FAERS Safety Report 21369496 (Version 1)
Quarter: 2022Q3

REPORT INFORMATION
  Report Type: Spontaneous
  Country: AU (occurrence: AU)
  Receive Date: 20220923
  Receipt Date: 20220923
  Transmission Date: 20221027
  Serious: Yes (Other)
  Sender: FDA-Public Use
  Company Number: AU-Accord-278434

PATIENT
  Sex: Female

DRUGS (1)
  1. GLIMEPIRIDE [Suspect]
     Active Substance: GLIMEPIRIDE
     Indication: Product used for unknown indication
     Dosage: STRENGTH: 4 MILLIGRAM
     Route: 065

REACTIONS (6)
  - Diverticulitis [Not Recovered/Not Resolved]
  - Frequent bowel movements [Not Recovered/Not Resolved]
  - Abdominal discomfort [Not Recovered/Not Resolved]
  - Defaecation urgency [Not Recovered/Not Resolved]
  - Micturition urgency [Not Recovered/Not Resolved]
  - Diarrhoea [Not Recovered/Not Resolved]
